FAERS Safety Report 6272567-2 (Version None)
Quarter: 2009Q3

REPORT INFORMATION
  Report Type: 
  Country: None (occurrence: None)
  Receive Date: 20090717
  Receipt Date: 20090709
  Transmission Date: 20100115
  Serious: Yes (Hospitalization)
  Sender: FDA-Public Use
  Company Number: PHHO2009ES06257

PATIENT
  Sex: Male
  Weight: 83 kg

DRUGS (13)
  1. RAD 666 RAD+TAB [Suspect]
     Indication: LIVER TRANSPLANT
     Dosage: 2 MG / DAY
     Route: 048
     Dates: start: 20090508, end: 20090625
  2. RAD 666 RAD+TAB [Suspect]
     Dosage: 3MG
     Route: 048
     Dates: end: 20090625
  3. DICLOFENAC [Suspect]
     Dosage: 50 MG, QD
     Route: 048
     Dates: start: 20090428, end: 20090429
  4. TACROLIMUS COMP-TAC+ [Suspect]
     Indication: LIVER TRANSPLANT
     Dosage: 16 MG /DAY
     Route: 048
     Dates: start: 20090407, end: 20090621
  5. TACROLIMUS COMP-TAC+ [Suspect]
     Dosage: 14 MG/DAY
     Route: 048
     Dates: start: 20090427, end: 20090427
  6. TACROLIMUS COMP-TAC+ [Suspect]
     Dosage: 12 MG / DAY
     Route: 048
  7. TACROLIMUS COMP-TAC+ [Suspect]
     Dosage: 3MG
     Route: 048
  8. TACROLIMUS COMP-TAC+ [Suspect]
     Dosage: 2 MG/ DAY
     Route: 048
     Dates: end: 20090521
  9. TACROLIMUS COMP-TAC+ [Suspect]
     Dosage: 1 MG DAILY
     Route: 048
     Dates: start: 20090706
  10. ZYLORIC [Suspect]
     Indication: GOUT
     Dosage: 300MG
     Route: 048
     Dates: start: 20090602, end: 20090603
  11. PREDNISONE [Concomitant]
     Indication: LIVER TRANSPLANT
     Dosage: 15 MG/ DAY
     Route: 048
     Dates: start: 20090407
  12. PREDNISONE [Concomitant]
     Dosage: 10 MG DAILY
     Route: 048
  13. OMEPRAZOL [Concomitant]
     Indication: PROPHYLAXIS
     Dosage: UNK
     Dates: start: 20090407

REACTIONS (18)
  - ANAEMIA [None]
  - ASPERGILLOSIS [None]
  - BLOOD CREATININE INCREASED [None]
  - COLITIS [None]
  - CYTOMEGALOVIRUS INFECTION [None]
  - DIARRHOEA [None]
  - GASTRIC MUCOSAL LESION [None]
  - GASTROINTESTINAL DISORDER [None]
  - GASTROINTESTINAL HAEMORRHAGE [None]
  - HAEMOGLOBIN DECREASED [None]
  - LARGE INTESTINAL ULCER [None]
  - LUNG INFECTION [None]
  - LUNG INFILTRATION [None]
  - MELAENA [None]
  - PYREXIA [None]
  - RENAL FAILURE CHRONIC [None]
  - STAPHYLOCOCCAL INFECTION [None]
  - STAPHYLOCOCCAL SEPSIS [None]
